FAERS Safety Report 14071802 (Version 1)
Quarter: 2017Q4

REPORT INFORMATION
  Report Type: Spontaneous
  Country: US (occurrence: US)
  Receive Date: 20171010
  Receipt Date: 20171010
  Transmission Date: 20180321
  Serious: No
  Sender: FDA-Public Use
  Company Number: None

PATIENT
  Age: 41 Year
  Sex: Female
  Weight: 81 kg

DRUGS (2)
  1. LORITAB [Concomitant]
  2. TRAMADOL. [Suspect]
     Active Substance: TRAMADOL
     Indication: PAIN
     Dosage: ?          QUANTITY:30 TABLET(S);?
     Route: 048
     Dates: start: 20140207, end: 20170307

REACTIONS (20)
  - Rash [None]
  - Vomiting [None]
  - Nervousness [None]
  - Paraesthesia [None]
  - Constipation [None]
  - Diarrhoea [None]
  - Flushing [None]
  - Headache [None]
  - Somnolence [None]
  - Hyperhidrosis [None]
  - Erythema [None]
  - Dry mouth [None]
  - Anxiety [None]
  - Dyspnoea [None]
  - Nausea [None]
  - Feeling hot [None]
  - Dizziness [None]
  - Pruritus [None]
  - Fatigue [None]
  - Abdominal pain upper [None]

NARRATIVE: CASE EVENT DATE: 20160125
